FAERS Safety Report 18606393 (Version 3)
Quarter: 2021Q2

REPORT INFORMATION
  Report Type: Report from Study
  Country: BR (occurrence: BR)
  Receive Date: 20201211
  Receipt Date: 20210515
  Transmission Date: 20210717
  Serious: Yes (Hospitalization, Disabling, Other)
  Sender: FDA-Public Use
  Company Number: BR-TAKEDA-2020TUS056177

PATIENT
  Age: 33 Year
  Sex: Male
  Weight: 55 kg

DRUGS (6)
  1. HEMO?8R [Suspect]
     Active Substance: ANTIHEMOPHILIC FACTOR, HUMAN RECOMBINANT
     Dosage: 1000 INTERNATIONAL UNIT, QD
     Route: 050
     Dates: start: 20201007
  2. DIPYRONE [Concomitant]
     Active Substance: DIPYRONE
     Indication: PAIN
     Dosage: UNK
     Dates: start: 20201107
  3. HEMO?8R [Suspect]
     Active Substance: ANTIHEMOPHILIC FACTOR, HUMAN RECOMBINANT
     Dosage: 1500 INTERNATIONAL UNIT, ON DEMAND
     Route: 042
  4. HEMO?8R [Suspect]
     Active Substance: ANTIHEMOPHILIC FACTOR, HUMAN RECOMBINANT
     Indication: FACTOR VIII DEFICIENCY
     Dosage: 1500 INTERNATIONAL UNIT, 3/WEEK
     Route: 050
     Dates: start: 20201007
  5. TRAMAL [Concomitant]
     Active Substance: TRAMADOL
     Indication: PAIN
     Dosage: UNK
     Dates: start: 20201107
  6. HEMO?8R [Suspect]
     Active Substance: ANTIHEMOPHILIC FACTOR, HUMAN RECOMBINANT
     Dosage: 3000 INTERNATIONAL UNIT, 3/WEEK
     Route: 042

REACTIONS (4)
  - Movement disorder [Not Recovered/Not Resolved]
  - Road traffic accident [Recovered/Resolved with Sequelae]
  - Bedridden [Not Recovered/Not Resolved]
  - Multiple fractures [Recovering/Resolving]

NARRATIVE: CASE EVENT DATE: 20201107
